FAERS Safety Report 7867295-3 (Version None)
Quarter: 2011Q4

REPORT INFORMATION
  Report Type: 
  Country: None (occurrence: None)
  Receive Date: 20111028
  Receipt Date: 20111017
  Transmission Date: 20120403
  Serious: Yes (Other)
  Sender: FDA-Public Use
  Company Number: US-BRISTOL-MYERS SQUIBB COMPANY-16167397

PATIENT
  Age: 45 Year
  Sex: Male

DRUGS (2)
  1. STAVUDINE [Suspect]
     Indication: HIV INFECTION
     Dosage: RECEIVED FOR 13 YEARS
     Dates: start: 19960101, end: 20090101
  2. ZIDOVUDINE [Suspect]
     Indication: HIV INFECTION
     Dosage: RECEIVED FOR 8 YEARS
     Dates: start: 19870101, end: 19950101

REACTIONS (5)
  - FACIAL WASTING [None]
  - ENOPHTHALMOS [None]
  - LAGOPHTHALMOS [None]
  - DRY EYE [None]
  - PUNCTATE KERATITIS [None]
